FAERS Safety Report 4411876-6 (Version None)
Quarter: 2004Q3

REPORT INFORMATION
  Report Type: 
  Country: None (occurrence: None)
  Receive Date: 20040728
  Receipt Date: 20040715
  Transmission Date: 20050211
  Serious: Yes (Other)
  Sender: FDA-Public Use
  Company Number: 2004026993

PATIENT
  Age: 55 Year
  Sex: Female

DRUGS (5)
  1. ZOLOFT [Suspect]
     Indication: DEPRESSION
     Dosage: 150 MG (1 IN 1 D), ORAL
     Route: 048
     Dates: start: 19970701
  2. BUSPIRONE HCL [Suspect]
     Indication: ILL-DEFINED DISORDER
     Dosage: 30 MG (15 MG, 2 IN 1 D), ORAL
     Route: 048
     Dates: start: 20040201, end: 20040401
  3. ZALEPLON (ZALEPLON) [Concomitant]
  4. LEVOTHYROXINE SODIUM [Concomitant]
  5. FLUVASTATIN  (FLUVASTATIN) [Concomitant]

REACTIONS (4)
  - ABDOMINAL DISTENSION [None]
  - HYPERTROPHY BREAST [None]
  - UTERINE LEIOMYOMA [None]
  - WEIGHT INCREASED [None]
